FAERS Safety Report 25962743 (Version 1)
Quarter: 2025Q4

REPORT INFORMATION
  Report Type: Spontaneous
  Country: US (occurrence: US)
  Receive Date: 20251027
  Receipt Date: 20251027
  Transmission Date: 20260117
  Serious: No
  Sender: EISAI
  Company Number: US-Eisai-EC-2025-197800

PATIENT
  Age: 68 Year
  Sex: Female
  Weight: 76.7 kg

DRUGS (6)
  1. LEQEMBI [Suspect]
     Active Substance: LECANEMAB-IRMB
     Indication: Dementia Alzheimer^s type
     Route: 042
     Dates: start: 202412, end: 202509
  2. PHENERGAN [Concomitant]
     Active Substance: PROMETHAZINE HYDROCHLORIDE
     Indication: Nausea
  3. VICODIN [Concomitant]
     Active Substance: ACETAMINOPHEN\HYDROCODONE BITARTRATE
     Indication: Nausea
  4. VICODIN [Concomitant]
     Active Substance: ACETAMINOPHEN\HYDROCODONE BITARTRATE
     Indication: Vomiting
  5. NIACIN [Concomitant]
     Active Substance: NIACIN
     Indication: Nausea
  6. NIACIN [Concomitant]
     Active Substance: NIACIN
     Indication: Vomiting

REACTIONS (4)
  - Fatigue [Not Recovered/Not Resolved]
  - Neck pain [Recovering/Resolving]
  - Headache [Unknown]
  - Fall [Recovering/Resolving]

NARRATIVE: CASE EVENT DATE: 20250901
